FAERS Safety Report 20035670 (Version 1)
Quarter: 2021Q4

REPORT INFORMATION
  Report Type: Spontaneous
  Country: PT (occurrence: PT)
  Receive Date: 20211104
  Receipt Date: 20211104
  Transmission Date: 20220304
  Serious: Yes (Death, Hospitalization, Other)
  Sender: FDA-Public Use
  Company Number: PT-009507513-2111PRT000245

PATIENT
  Age: 56 Year
  Sex: Female

DRUGS (1)
  1. PEMBROLIZUMAB [Suspect]
     Active Substance: PEMBROLIZUMAB
     Indication: Transitional cell carcinoma
     Dosage: 200 MILLILITER, Q3W
     Route: 042
     Dates: start: 20210104, end: 20210125

REACTIONS (10)
  - Death [Fatal]
  - Malignant neoplasm progression [Unknown]
  - Tumour hyperprogression [Unknown]
  - Tumour pseudoprogression [Unknown]
  - Hepatic cytolysis [Unknown]
  - Abdominal pain [Unknown]
  - Nausea [Unknown]
  - Decreased appetite [Unknown]
  - Hepatomegaly [Unknown]
  - General physical health deterioration [Unknown]

NARRATIVE: CASE EVENT DATE: 20210101
